FAERS Safety Report 8101770 (Version 8)
Quarter: 2013Q2

REPORT INFORMATION
  Report Type: Report from Study
  Country: AR (occurrence: AR)
  Receive Date: 20110823
  Receipt Date: 20130612
  Transmission Date: 20140414
  Serious: Yes (Hospitalization, Other)
  Sender: FDA-Public Use
  Company Number: AR-JNJFOC-20110805230

PATIENT
  Age: 48 Year
  Sex: Female
  Weight: 65 kg

DRUGS (5)
  1. GOLIMUMAB [Suspect]
     Route: 042
  2. GOLIMUMAB [Suspect]
     Indication: RHEUMATOID ARTHRITIS
     Route: 042
     Dates: start: 20100927, end: 20110606
  3. FOLIC ACID [Concomitant]
     Indication: PROPHYLAXIS
     Route: 048
  4. CALCIO CIT PLUS [Concomitant]
     Indication: PROPHYLAXIS
     Route: 048
  5. MEPREDNISONE [Concomitant]
     Indication: RHEUMATOID ARTHRITIS
     Route: 048

REACTIONS (1)
  - IIIrd nerve paresis [Recovering/Resolving]
